FAERS Safety Report 4511339-3 (Version None)
Quarter: 2004Q4

REPORT INFORMATION
  Report Type: 
  Country: None (occurrence: None)
  Receive Date: 20041122
  Receipt Date: 20041114
  Transmission Date: 20050328
  Serious: Yes (Other)
  Sender: FDA-Public Use
  Company Number: 2004-06-1920

PATIENT
  Age: 79 Year
  Sex: Female

DRUGS (7)
  1. CELESTONE [Suspect]
     Indication: ANTIINFLAMMATORY THERAPY
     Dosage: 4-3 DROPS QD* INTRAOCULA
     Route: 031
     Dates: start: 20020820, end: 20021004
  2. GENTACIN (GENTAMICIN SULFATE) [Suspect]
     Indication: ANTIINFLAMMATORY THERAPY
     Dosage: 6 DROPS QD INTRAOCULAR
     Route: 031
     Dates: start: 20020808, end: 20020902
  3. ATROPINE SULFATE [Suspect]
     Indication: INFLAMMATION
     Dosage: 2 DROPS QD INTRAOCULAR
     Route: 031
     Dates: start: 20020808, end: 20020902
  4. LEVOFLOXACIN [Concomitant]
  5. DICLOFENAC SODIUM [Concomitant]
  6. TRUSOPT [Concomitant]
  7. FLUOROMETHOLONE [Concomitant]

REACTIONS (3)
  - CONDITION AGGRAVATED [None]
  - CORNEAL DEPOSITS [None]
  - ENDOPHTHALMITIS [None]
